FAERS Safety Report 25331965 (Version 1)
Quarter: 2025Q2

REPORT INFORMATION
  Report Type: Spontaneous
  Country: IN (occurrence: IN)
  Receive Date: 20250519
  Receipt Date: 20250519
  Transmission Date: 20250717
  Serious: Yes (Other)
  Sender: SANDOZ
  Company Number: IN-002147023-NVSC2025IN076185

PATIENT
  Sex: Female

DRUGS (3)
  1. MYFORTIC [Suspect]
     Active Substance: MYCOPHENOLATE SODIUM
     Indication: Renal transplant
     Dosage: 360 MG, BID
     Route: 048
  2. TACROLIMUS [Suspect]
     Active Substance: TACROLIMUS
     Indication: Renal transplant
     Dosage: 2.5 MG, BID
     Route: 048
  3. TACROLIMUS [Suspect]
     Active Substance: TACROLIMUS
     Route: 048

REACTIONS (13)
  - Urosepsis [Unknown]
  - Acute kidney injury [Unknown]
  - Graft complication [Unknown]
  - Cerebrovascular accident [Unknown]
  - Intervertebral disc degeneration [Unknown]
  - Electrolyte imbalance [Unknown]
  - Hypoalbuminaemia [Unknown]
  - Pain [Unknown]
  - Swelling [Unknown]
  - Urine output decreased [Unknown]
  - Haemangioma of bone [Unknown]
  - Candida infection [Unknown]
  - Off label use [Unknown]
